FAERS Safety Report 8013862-6 (Version None)
Quarter: 2011Q4

REPORT INFORMATION
  Report Type: 
  Country: None (occurrence: None)
  Receive Date: 20111229
  Receipt Date: 20111221
  Transmission Date: 20120403
  Serious: Yes (Other)
  Sender: FDA-Public Use
  Company Number: GB-BAUSCH-2011BL008994

PATIENT
  Age: 60 Year
  Sex: Female
  Weight: 45 kg

DRUGS (5)
  1. VELCADE [Suspect]
     Indication: MULTIPLE MYELOMA
     Route: 065
  2. INSULIN [Concomitant]
  3. CYCLOPHOSPHAMIDE [Suspect]
     Indication: MULTIPLE MYELOMA
     Route: 065
  4. DEXAMETHASONE [Suspect]
     Indication: MULTIPLE MYELOMA
  5. THALIDOMIDE [Suspect]
     Indication: MULTIPLE MYELOMA
     Route: 065

REACTIONS (7)
  - EPILEPSY [None]
  - HYPOTENSION [None]
  - PNEUMONIA [None]
  - DECREASED APPETITE [None]
  - SOMNOLENCE [None]
  - HYPOGLYCAEMIA [None]
  - TREMOR [None]
